FAERS Safety Report 16274224 (Version 3)
Quarter: 2019Q2

REPORT INFORMATION
  Report Type: Spontaneous
  Country: US (occurrence: US)
  Receive Date: 20190506
  Receipt Date: 20190623
  Transmission Date: 20190711
  Serious: Yes (Hospitalization, Other)
  Sender: FDA-Public Use
  Company Number: US-JNJFOC-20190503373

PATIENT
  Sex: Male

DRUGS (20)
  1. VITAMIN E [Concomitant]
     Active Substance: .ALPHA.-TOCOPHEROL
     Indication: VITAMIN E DEFICIENCY
     Dosage: EVERY OTHER DAY FOR MORE THAN 30 YEARS
     Route: 065
  2. VITAMIN D3 CALCIUM [Concomitant]
     Active Substance: CALCIUM\CHOLECALCIFEROL
     Indication: BONE DISORDER
     Dosage: DATE CAPTURE IS APPROXIMATELY
     Route: 065
     Dates: start: 20190301
  3. PREDNISONE. [Concomitant]
     Active Substance: PREDNISONE
     Indication: ADRENAL DISORDER
     Route: 065
     Dates: start: 20190315
  4. DEGARELIX [Concomitant]
     Active Substance: DEGARELIX
     Indication: BLOOD TESTOSTERONE DECREASED
     Route: 065
     Dates: start: 20190301
  5. VITAMIN D [Concomitant]
     Active Substance: VITAMIN D NOS
     Indication: VITAMIN D DEFICIENCY
     Dosage: 5000 UNITS
     Route: 065
     Dates: start: 201510
  6. KONSYL ORIGINAL FORMULA PSYLLIUM FIBER [Concomitant]
     Active Substance: PSYLLIUM HUSK
     Indication: CONSTIPATION
     Dosage: MORE THAN 35 YEARS AGO
     Route: 065
  7. COQ 10 [Concomitant]
     Active Substance: UBIDECARENONE
     Dosage: MORE THAN 35 YEARS
     Route: 065
  8. METOPROLOL SUCCINATE. [Concomitant]
     Active Substance: METOPROLOL SUCCINATE
     Indication: BLOOD PRESSURE MEASUREMENT
     Route: 065
     Dates: start: 200410
  9. VITAMIN B COMPLEX [Concomitant]
     Active Substance: CYANOCOBALAMIN\DEXPANTHENOL\NIACINAMIDE\PYRIDOXINE HYDROCHLORIDE\RIBOFLAVIN 5^-PHOSPHATE SODIUM\THIAMINE HYDROCHLORIDE\VITAMIN B COMPLEX
     Indication: VITAMIN B COMPLEX DEFICIENCY
     Route: 065
     Dates: start: 2016
  10. VITAMIN B12 [Concomitant]
     Active Substance: CYANOCOBALAMIN
     Indication: VITAMIN B12 DEFICIENCY
     Route: 065
     Dates: start: 20170901
  11. AMLODIPINE [Concomitant]
     Active Substance: AMLODIPINE BESYLATE
     Indication: HYPERTENSION
     Route: 065
     Dates: start: 20131210
  12. NIACIN. [Concomitant]
     Active Substance: NIACIN
     Dosage: NIGHT
     Route: 065
     Dates: start: 2018
  13. HYDROCHLOROTHIAZIDE W/LOSARTAN [Concomitant]
     Active Substance: HYDROCHLOROTHIAZIDE\LOSARTAN
     Indication: BLOOD PRESSURE ABNORMAL
     Route: 065
     Dates: start: 2017
  14. ATORVASTATIN [Concomitant]
     Active Substance: ATORVASTATIN
     Indication: LOW DENSITY LIPOPROTEIN
     Route: 065
     Dates: start: 20120517
  15. ASPIRIN. [Concomitant]
     Active Substance: ASPIRIN
     Indication: ANTICOAGULANT THERAPY
     Dosage: MORE THAN 30 YEARS AGO
     Route: 065
  16. FISH OIL [Concomitant]
     Active Substance: FISH OIL
     Dosage: 1000 MG CONCENTRATED FISH OIL WITH 300 MG OMEGA 3 FATTY ACIDS FOR MORE THAN 30 YEARS.
     Route: 065
  17. STOOL SOFTENER (DOCUSATE) [Concomitant]
     Active Substance: DOCUSATE
     Indication: FAECES SOFT
     Dosage: START DATE WAS IN MAY/JUN 2016?QUANTITY ADMINISTERED ONE IN AM AND IN PM
     Route: 065
     Dates: start: 2016
  18. ZYTIGA [Suspect]
     Active Substance: ABIRATERONE ACETATE
     Indication: BLOOD TESTOSTERONE DECREASED
     Dosage: TAKE 4 (250MG) TABLETS ONCE DAILY
     Route: 048
     Dates: start: 20190314, end: 20190524
  19. SILDENAFIL. [Concomitant]
     Active Substance: SILDENAFIL
     Dosage: USED FOR FEW MONTHS 2 YEARS AGO, NOT USING ANYMORE AND COULD TRY IN FUTURE.
     Route: 065
  20. VITAMIN C PLUS ROSE HIPS [Concomitant]
     Indication: ANTIVIRAL PROPHYLAXIS
     Dosage: MORE THAN 30 YEARS
     Route: 065

REACTIONS (2)
  - Hepatic enzyme increased [Not Recovered/Not Resolved]
  - Enzyme abnormality [Not Recovered/Not Resolved]

NARRATIVE: CASE EVENT DATE: 2019
